FAERS Safety Report 11887693 (Version 2)
Quarter: 2016Q1

REPORT INFORMATION
  Report Type: Spontaneous
  Country: DE (occurrence: DE)
  Receive Date: 20160105
  Receipt Date: 20160119
  Transmission Date: 20160526
  Serious: Yes (Other)
  Sender: FDA-Public Use
  Company Number: DE-AUROBINDO-AUR-APL-2015-12006

PATIENT
  Age: 29 Year
  Sex: Female

DRUGS (1)
  1. QUETIAPINE PROLONGED-RELEASE TABLET [Suspect]
     Active Substance: QUETIAPINE
     Indication: PRODUCT USED FOR UNKNOWN INDICATION
     Route: 065

REACTIONS (9)
  - Tachycardia [Unknown]
  - Seizure [Unknown]
  - Toxicity to various agents [Unknown]
  - Drug level above therapeutic [Unknown]
  - Exposure during pregnancy [Unknown]
  - Hypotension [Unknown]
  - Coma [Unknown]
  - Somnolence [Unknown]
  - Suicide attempt [Unknown]
